FAERS Safety Report 12278337 (Version 1)
Quarter: 2016Q2

REPORT INFORMATION
  Report Type: Spontaneous
  Country: US (occurrence: US)
  Receive Date: 20160418
  Receipt Date: 20160418
  Transmission Date: 20160815
  Serious: No
  Sender: FDA-Public Use
  Company Number: US-WARNER CHILCOTT, LLC-1050687

PATIENT
  Age: 65 Year
  Sex: Male
  Weight: 79.55 kg

DRUGS (4)
  1. DELZICOL [Suspect]
     Active Substance: MESALAMINE
  2. MESALAMINE. [Concomitant]
     Active Substance: MESALAMINE
  3. ASACOL HD [Suspect]
     Active Substance: MESALAMINE
     Indication: COLITIS ULCERATIVE
     Route: 048
  4. ANTIHYPERTENSIVES [Concomitant]
     Active Substance: UNSPECIFIED INGREDIENT

REACTIONS (3)
  - Myalgia [Not Recovered/Not Resolved]
  - Bone pain [Not Recovered/Not Resolved]
  - Colitis ulcerative [Recovered/Resolved]
